FAERS Safety Report 4301327-4 (Version None)
Quarter: 2004Q1

REPORT INFORMATION
  Report Type: 
  Country: None (occurrence: None)
  Receive Date: 20040219
  Receipt Date: 20040210
  Transmission Date: 20041129
  Serious: Yes (Hospitalization)
  Sender: FDA-Public Use
  Company Number: IE-JNJFOC-20040202524

PATIENT
  Age: 70 Year
  Sex: Female

DRUGS (5)
  1. REMICADE [Suspect]
     Indication: RHEUMATOID ARTHRITIS
     Dosage: 3 MG, INTRAVENOUS
     Route: 042
     Dates: start: 20020327, end: 20031020
  2. MORPHINE SULFATE [Concomitant]
  3. ACTONEL [Concomitant]
  4. TRENTAL [Concomitant]
  5. SOLPADOL (PANADEINE CO) [Concomitant]

REACTIONS (1)
  - SQUAMOUS CELL CARCINOMA [None]
